FAERS Safety Report 8320509-8 (Version None)
Quarter: 2012Q2

REPORT INFORMATION
  Report Type: 
  Country: None (occurrence: None)
  Receive Date: 20120427
  Receipt Date: 20120427
  Transmission Date: 20120825
  Serious: Yes (Other)
  Sender: FDA-Public Use
  Company Number: None

PATIENT
  Age: 22 Year
  Sex: Female
  Weight: 61.234 kg

DRUGS (1)
  1. MIRENA [Suspect]
     Indication: CONTRACEPTION
     Dates: start: 20110408, end: 20120420

REACTIONS (10)
  - DEPRESSION [None]
  - ANGER [None]
  - RENAL DISORDER [None]
  - DEVICE EXPULSION [None]
  - ALOPECIA [None]
  - MIGRAINE [None]
  - UNEVALUABLE EVENT [None]
  - ABDOMINAL DISTENSION [None]
  - THROMBOSIS [None]
  - ABDOMINAL PAIN UPPER [None]
